FAERS Safety Report 8520753 (Version 4)
Quarter: 2013Q2

REPORT INFORMATION
  Report Type: Spontaneous
  Country: US (occurrence: US)
  Receive Date: 20120418
  Receipt Date: 20130522
  Transmission Date: 20140414
  Serious: No
  Sender: FDA-Public Use
  Company Number: US-ASTRAZENECA-2011SE04678

PATIENT
  Age: 72 Year
  Sex: Female
  Weight: 85.3 kg

DRUGS (4)
  1. NEXIUM [Suspect]
     Dosage: TAKES THE MEDICATION TWICE DAILY INSTEAD OF ONCE PER DAY
     Route: 048
  2. NEXIUM [Suspect]
     Route: 048
  3. NEXIUM [Suspect]
     Route: 048
  4. NEXIUM [Suspect]
     Route: 048

REACTIONS (7)
  - Gastrooesophageal reflux disease [Unknown]
  - Diabetes mellitus [Unknown]
  - Dyspepsia [Unknown]
  - Gastric disorder [Unknown]
  - Aphagia [Unknown]
  - Drug dose omission [Unknown]
  - Off label use [Unknown]
